FAERS Safety Report 8876216 (Version 1)
Quarter: 2012Q4

REPORT INFORMATION
  Report Type: 
  Country: TN (occurrence: TN)
  Receive Date: 20121023
  Receipt Date: 20121023
  Transmission Date: 20130627
  Serious: Yes (Hospitalization)
  Sender: FDA-Public Use
  Company Number: PHHY2012TN092908

PATIENT
  Age: 16 Year
  Sex: Female

DRUGS (2)
  1. CIPROFLOXACIN [Suspect]
     Indication: KIDNEY INFECTION
     Route: 048
  2. NIFLUMIC ACID [Suspect]
     Indication: KIDNEY INFECTION

REACTIONS (3)
  - Renal papillary necrosis [Unknown]
  - Renal failure acute [Unknown]
  - Blood creatinine increased [Recovered/Resolved]
